FAERS Safety Report 4683199-1 (Version None)
Quarter: 2005Q2

REPORT INFORMATION
  Report Type: 
  Country: None (occurrence: None)
  Receive Date: 20050602
  Receipt Date: 20050322
  Transmission Date: 20051028
  Serious: No
  Sender: FDA-Public Use
  Company Number: USA050392928

PATIENT
  Age: 68 Year
  Sex: Female

DRUGS (11)
  1. CYMBALTA [Suspect]
     Indication: DEPRESSION
     Dosage: 30 MG DAY
     Dates: start: 20050303
  2. EVISTA [Suspect]
     Dosage: 60 MG DAY
     Dates: start: 20050303
  3. ATENOLOL [Concomitant]
  4. DITROPAN XL [Concomitant]
  5. ZESTORETIC [Concomitant]
  6. CALCIUM CARBONATE W/VITAMIN D NOS [Concomitant]
  7. ASCORBIC ACID [Concomitant]
  8. VITAMIN E [Concomitant]
  9. OMEGA -3 FISH OIL [Concomitant]
  10. ASPIRIN [Concomitant]
  11. PAXIL [Concomitant]

REACTIONS (11)
  - BLOOD PRESSURE INCREASED [None]
  - CONSTIPATION [None]
  - DRY MOUTH [None]
  - HEADACHE [None]
  - HOT FLUSH [None]
  - MENTAL STATUS CHANGES [None]
  - MUSCLE SPASMS [None]
  - PALPITATIONS [None]
  - RETCHING [None]
  - VIRAL INFECTION [None]
  - VOMITING [None]
